FAERS Safety Report 10219596 (Version 1)
Quarter: 2014Q2

REPORT INFORMATION
  Report Type: Spontaneous
  Country: FR (occurrence: FR)
  Receive Date: 20140605
  Receipt Date: 20140605
  Transmission Date: 20141212
  Serious: Yes (Hospitalization)
  Sender: FDA-Public Use
  Company Number: FR-GLAXOSMITHKLINE-B0997193A

PATIENT
  Age: 53 Year
  Sex: Male

DRUGS (18)
  1. NIMBEX [Suspect]
     Indication: ANAESTHESIA
     Route: 042
     Dates: start: 20121203, end: 20121203
  2. ZINNAT [Suspect]
     Indication: PRODUCT USED FOR UNKNOWN INDICATION
     Route: 042
     Dates: start: 20121203, end: 20121203
  3. HEPARINE SODIUM [Suspect]
     Indication: EXTRACORPOREAL CIRCULATION
     Dosage: 23000IU PER DAY
     Route: 042
     Dates: start: 20121203, end: 20121203
  4. KARDEGIC [Suspect]
     Indication: PRODUCT USED FOR UNKNOWN INDICATION
     Dosage: 1SAC IN THE MORNING
     Route: 048
  5. ATARAX [Suspect]
     Indication: ANXIETY
     Dosage: 100MG TWICE PER DAY
     Route: 048
     Dates: start: 20121202, end: 20121203
  6. GABAPENTIN [Suspect]
     Indication: PRODUCT USED FOR UNKNOWN INDICATION
     Dosage: 600MG PER DAY
     Route: 048
     Dates: start: 20121203, end: 20121203
  7. ALPRAZOLAM [Suspect]
     Indication: ANXIETY
     Dosage: .5MG PER DAY
     Route: 048
     Dates: start: 20121203, end: 20121203
  8. SUFENTANIL [Suspect]
     Indication: ANAESTHESIA
     Route: 042
     Dates: start: 20121203, end: 20121203
  9. EXACYL [Suspect]
     Indication: HAEMORRHAGE PROPHYLAXIS
     Route: 042
     Dates: start: 20121203, end: 20121203
  10. KETAMINE [Suspect]
     Indication: ANAESTHESIA
     Route: 042
     Dates: start: 20121203, end: 20121203
  11. MIDAZOLAM [Suspect]
     Indication: ANAESTHESIA
     Route: 042
     Dates: start: 20121203, end: 20121203
  12. PROPOFOL [Suspect]
     Indication: ANAESTHESIA
     Route: 042
     Dates: start: 20121203, end: 20121203
  13. PROTAMINE [Suspect]
     Indication: PRODUCT USED FOR UNKNOWN INDICATION
     Dosage: 180MG PER DAY
     Route: 042
     Dates: start: 20121203, end: 20121203
  14. CRESTOR [Concomitant]
     Indication: DYSLIPIDAEMIA
     Dosage: 20MG AT NIGHT
     Route: 048
  15. BISOPROLOL [Concomitant]
     Indication: PRODUCT USED FOR UNKNOWN INDICATION
     Dosage: 5MG IN THE MORNING
     Route: 048
  16. RAMIPRIL [Concomitant]
     Indication: PRODUCT USED FOR UNKNOWN INDICATION
     Dosage: 5MG IN THE MORNING
     Route: 065
  17. EPHEDRINE [Concomitant]
     Route: 065
     Dates: start: 20121203, end: 20121203
  18. NORADRENALINE [Concomitant]
     Route: 065
     Dates: start: 20121203, end: 20121203

REACTIONS (1)
  - Post procedural haemorrhage [Recovered/Resolved]
